FAERS Safety Report 5331079-0 (Version None)
Quarter: 2007Q2

REPORT INFORMATION
  Report Type: 
  Country: None (occurrence: None)
  Receive Date: 20070522
  Receipt Date: 20070517
  Transmission Date: 20071010
  Serious: Yes (Other)
  Sender: FDA-Public Use
  Company Number: A0651495A

PATIENT
  Age: 52 Year
  Sex: Female

DRUGS (6)
  1. NICORETTE [Suspect]
     Dosage: 40MG PER DAY
     Dates: start: 19991201
  2. LISINOPRIL [Concomitant]
  3. LEXAPRO [Concomitant]
  4. TOPROL-XL [Concomitant]
  5. CIPRO [Concomitant]
  6. PREDNISONE TAB [Concomitant]

REACTIONS (10)
  - ANXIETY [None]
  - CHILLS [None]
  - DRUG WITHDRAWAL SYNDROME [None]
  - DYSPNOEA [None]
  - HYPERTENSION [None]
  - INTENTIONAL DRUG MISUSE [None]
  - MALAISE [None]
  - PNEUMOTHORAX [None]
  - TREMOR [None]
  - WHEEZING [None]
